FAERS Safety Report 19205655 (Version 1)
Quarter: 2021Q2

REPORT INFORMATION
  Report Type: Spontaneous
  Country: US (occurrence: US)
  Receive Date: 20210503
  Receipt Date: 20210503
  Transmission Date: 20210717
  Serious: No
  Sender: FDA-Public Use
  Company Number: US-FARMAPROD-202101-0115

PATIENT
  Sex: Female

DRUGS (29)
  1. CALCIUM/VITAMIN D3 [Concomitant]
     Active Substance: CALCIUM\CHOLECALCIFEROL
     Dosage: 600 MG?500 EXTENDED RELEASE TABLET
  2. ALLEGRA D?12 HOUR [Concomitant]
     Active Substance: FEXOFENADINE HYDROCHLORIDE\PSEUDOEPHEDRINE HYDROCHLORIDE
  3. PIMECROLIMUS. [Concomitant]
     Active Substance: PIMECROLIMUS
  4. LIDODERM [Concomitant]
     Active Substance: LIDOCAINE
  5. OXERVATE [Suspect]
     Active Substance: CENEGERMIN-BKBJ
     Indication: DRY EYE
     Route: 047
     Dates: start: 20201203
  6. FISH OIL [Concomitant]
     Active Substance: FISH OIL
     Dosage: 100?150 MG
  7. TYLENOL EXTRA STRENGTH [Concomitant]
     Active Substance: ACETAMINOPHEN
  8. PRILOSEC OTC [Concomitant]
     Active Substance: OMEPRAZOLE MAGNESIUM
  9. NAFTIN [Concomitant]
     Active Substance: NAFTIFINE HYDROCHLORIDE
  10. MAGNESIUM [Concomitant]
     Active Substance: MAGNESIUM
  11. XYZAL [Concomitant]
     Active Substance: LEVOCETIRIZINE DIHYDROCHLORIDE
  12. EUCRISA [Concomitant]
     Active Substance: CRISABOROLE
  13. TOBRADEX [Concomitant]
     Active Substance: DEXAMETHASONE\TOBRAMYCIN
     Dosage: 0.3%?0.1%
  14. HYDROCORTISONE VALERATE. [Concomitant]
     Active Substance: HYDROCORTISONE VALERATE
  15. PEPCID [Concomitant]
     Active Substance: FAMOTIDINE
  16. NYSTATIN/TRIAMCINOLONE [Concomitant]
     Active Substance: NYSTATIN\TRIAMCINOLONE
  17. XIIDRA [Concomitant]
     Active Substance: LIFITEGRAST
  18. UBIQUINOL [Concomitant]
     Active Substance: UBIQUINOL
  19. SYSTANE (HYPROMELLOSE 2910 (4000 MPA.S)) [Concomitant]
     Active Substance: HYPROMELLOSE 2910 (4000 MPA.S)
     Dosage: 0.3%?0.4%
  20. HYDROCORTISON [Concomitant]
     Active Substance: HYDROCORTISONE
  21. CREON [Concomitant]
     Active Substance: PANCRELIPASE AMYLASE\PANCRELIPASE LIPASE\PANCRELIPASE PROTEASE
     Dosage: 12,000?60,000?80,000 UNIT
  22. POTASSIUM [Concomitant]
     Active Substance: POTASSIUM
     Dosage: 595(99) MG
  23. CYCLOBENZAPRINE HCL [Concomitant]
     Active Substance: CYCLOBENZAPRINE HYDROCHLORIDE
  24. BIOTIN [Concomitant]
     Active Substance: BIOTIN
  25. VITAMIN D3 [Concomitant]
     Active Substance: CHOLECALCIFEROL
  26. ELIDEL [Concomitant]
     Active Substance: PIMECROLIMUS
  27. TACROLIMUS/PSEUDOCATALASE [Concomitant]
  28. LOTEMAX [Concomitant]
     Active Substance: LOTEPREDNOL ETABONATE
  29. TRIAMCINOLONE ACETONIDE. [Concomitant]
     Active Substance: TRIAMCINOLONE ACETONIDE

REACTIONS (2)
  - Eye pain [Unknown]
  - Eyelid pain [Unknown]
